FAERS Safety Report 10090306 (Version 2)
Quarter: 2014Q2

REPORT INFORMATION
  Report Type: Spontaneous
  Country: US (occurrence: US)
  Receive Date: 20140421
  Receipt Date: 20140428
  Transmission Date: 20141212
  Serious: Yes (Life-Threatening, Hospitalization)
  Sender: FDA-Public Use
  Company Number: US-JNJFOC-20140413825

PATIENT
  Age: 69 Year
  Sex: Female
  Weight: 79.7 kg

DRUGS (11)
  1. XARELTO [Suspect]
     Indication: DEEP VEIN THROMBOSIS
     Route: 048
  2. XARELTO [Suspect]
     Indication: DEEP VEIN THROMBOSIS
     Dosage: 012 H
     Route: 048
     Dates: start: 20140128, end: 20140217
  3. METOPROLOL TARTRATE [Concomitant]
     Route: 065
  4. LASIX [Concomitant]
     Route: 065
  5. GLIPIZIDE [Concomitant]
     Route: 065
  6. CLARITIN [Concomitant]
     Route: 065
  7. TRICOR [Concomitant]
     Route: 065
  8. ASA [Concomitant]
     Route: 065
  9. CRESTOR [Concomitant]
     Route: 065
  10. COZAAR [Concomitant]
     Route: 065
  11. IMDUR [Concomitant]
     Route: 065

REACTIONS (7)
  - Renal failure acute [Unknown]
  - Gastrointestinal haemorrhage [Unknown]
  - Haemoglobin decreased [Unknown]
  - Hypotension [Unknown]
  - Hypoxia [Unknown]
  - Heart rate increased [Unknown]
  - Nausea [Unknown]
